FAERS Safety Report 18528007 (Version 2)
Quarter: 2020Q4

REPORT INFORMATION
  Report Type: Spontaneous
  Country: JP (occurrence: JP)
  Receive Date: 20201120
  Receipt Date: 20201211
  Transmission Date: 20210114
  Serious: Yes (Hospitalization, Other)
  Sender: FDA-Public Use
  Company Number: JP-GALDERMA-JP2020049381

PATIENT
  Age: 4 Decade
  Sex: Male

DRUGS (2)
  1. ANTEBATE [Concomitant]
     Active Substance: BETAMETHASONE DIPROPIONATE
     Indication: PSORIASIS
     Route: 061
  2. COMCLO [Suspect]
     Active Substance: CLOBETASOL PROPIONATE
     Indication: PSORIASIS
     Dosage: 0.05%
     Route: 061

REACTIONS (2)
  - Dermatitis contact [Recovering/Resolving]
  - Cellulitis [Recovering/Resolving]
